FAERS Safety Report 8219529-3 (Version None)
Quarter: 2012Q1

REPORT INFORMATION
  Report Type: 
  Country: None (occurrence: None)
  Receive Date: 20120319
  Receipt Date: 20120312
  Transmission Date: 20120608
  Serious: Yes (Other)
  Sender: FDA-Public Use
  Company Number: PHHY2012KR021847

PATIENT
  Age: 66 Year
  Sex: Male

DRUGS (4)
  1. TAMIFLU [Suspect]
     Dosage: 150 MG, QD
  2. ACETAMINOPHEN [Concomitant]
  3. WARFARIN SODIUM [Interacting]
     Indication: ATRIAL FIBRILLATION
  4. PREDNISOLONE [Concomitant]

REACTIONS (6)
  - PYREXIA [None]
  - COUGH [None]
  - UPPER RESPIRATORY TRACT INFECTION [None]
  - RHINORRHOEA [None]
  - DRUG INTERACTION [None]
  - INTERNATIONAL NORMALISED RATIO INCREASED [None]
